FAERS Safety Report 20964027 (Version 1)
Quarter: 2022Q2

REPORT INFORMATION
  Report Type: Spontaneous
  Country: CN (occurrence: CN)
  Receive Date: 20220615
  Receipt Date: 20220615
  Transmission Date: 20220721
  Serious: Yes (Hospitalization, Other)
  Sender: FDA-Public Use
  Company Number: CN-PFIZER INC-202200812343

PATIENT
  Age: 29 Year
  Sex: Female

DRUGS (6)
  1. CYTARABINE [Suspect]
     Active Substance: CYTARABINE
     Indication: Acute myeloid leukaemia
     Dosage: 100 MG/M2, DAILY (DAY 1-7)
     Route: 042
     Dates: start: 20200914
  2. CYTARABINE [Suspect]
     Active Substance: CYTARABINE
     Dosage: 1.5 G/M2, 2X/DAY (DAY 1, 3, 5)
     Route: 042
     Dates: start: 20201111
  3. IDARUBICIN HYDROCHLORIDE [Suspect]
     Active Substance: IDARUBICIN HYDROCHLORIDE
     Indication: Acute myeloid leukaemia
     Dosage: 10 MG/M2, DAILY (DAY 1-3)
     Route: 042
     Dates: start: 20200914
  4. MIDOSTAURIN [Suspect]
     Active Substance: MIDOSTAURIN
     Indication: Acute myeloid leukaemia
     Dosage: 50 MG, 2X/DAY (DAYS 8-21)
     Route: 048
     Dates: start: 20201014
  5. MIDOSTAURIN [Suspect]
     Active Substance: MIDOSTAURIN
     Dosage: 50 MG, 2X/DAY
     Route: 048
     Dates: start: 20201111
  6. METHYLPREDNISOLONE [Concomitant]
     Active Substance: METHYLPREDNISOLONE
     Dosage: 40 MG, 2X/DAY
     Route: 042
     Dates: start: 20201106

REACTIONS (4)
  - Differentiation syndrome [Recovered/Resolved]
  - Pyrexia [Recovered/Resolved]
  - Rash [Recovered/Resolved]
  - Pruritus [Recovered/Resolved]
